FAERS Safety Report 7617779-8 (Version None)
Quarter: 2011Q3

REPORT INFORMATION
  Report Type: 
  Country: None (occurrence: None)
  Receive Date: 20110718
  Receipt Date: 20110708
  Transmission Date: 20111222
  Serious: Yes (Hospitalization, Other)
  Sender: FDA-Public Use
  Company Number: AR-AMGEN-ARGSP2011027953

PATIENT
  Age: 77 Year
  Sex: Male
  Weight: 60 kg

DRUGS (3)
  1. ENBREL [Suspect]
     Indication: RHEUMATOID ARTHRITIS
     Dosage: UNK
     Route: 058
     Dates: start: 20110301, end: 20110501
  2. LEFLUNOMIDE [Concomitant]
     Dosage: UNK
     Route: 048
  3. ACETYLSALICYLIC ACID SRT [Concomitant]
     Dosage: UNK
     Route: 048

REACTIONS (3)
  - ANGIOPATHY [None]
  - RENAL FAILURE [None]
  - DIARRHOEA [None]
